FAERS Safety Report 9797165 (Version 1)
Quarter: 2014Q1

REPORT INFORMATION
  Report Type: Report from Study
  Country: CN (occurrence: CN)
  Receive Date: 20140106
  Receipt Date: 20140106
  Transmission Date: 20141002
  Serious: Yes (Other)
  Sender: FDA-Public Use
  Company Number: CN-ROCHE-1326172

PATIENT
  Sex: 0

DRUGS (11)
  1. MYCOPHENOLATE MOFETIL [Suspect]
     Indication: PROPHYLAXIS AGAINST TRANSPLANT REJECTION
     Route: 065
  2. MYCOPHENOLATE MOFETIL [Suspect]
     Dosage: DOSE REDUCED BY 500 MG/D
     Route: 065
  3. CYCLOSPORINE [Suspect]
     Indication: PROPHYLAXIS AGAINST TRANSPLANT REJECTION
     Route: 065
  4. CYCLOSPORINE [Suspect]
     Dosage: DOSE REDUCED BY 25 MG/DAY ON DAY 1 THROUGH DAY 8
     Route: 065
  5. AZATHIOPRINE [Suspect]
     Indication: PROPHYLAXIS AGAINST TRANSPLANT REJECTION
     Route: 065
  6. AZATHIOPRINE [Suspect]
     Dosage: DOSE REDUCED BY 25 MG/D
     Route: 065
  7. PREDNISONE [Suspect]
     Indication: PROPHYLAXIS AGAINST TRANSPLANT REJECTION
     Route: 065
  8. RAPAMYCIN [Suspect]
     Indication: PROPHYLAXIS AGAINST TRANSPLANT REJECTION
     Route: 065
  9. GEMCITABINE [Suspect]
     Indication: TRANSITIONAL CELL CARCINOMA
     Dosage: ON DAYS 1 AND 8 OF 21 DAYS CYCLE
     Route: 042
  10. CISPLATIN [Suspect]
     Indication: TRANSITIONAL CELL CARCINOMA
     Dosage: 100MG/CYCLE WAS ADMINISTERED ON 2 DIFFERENT DAYS (2 AND 3) OF 21 DAYS CYCLE
     Route: 042
  11. TROPISETRON HYDROCHLORIDE [Concomitant]
     Dosage: BEFORE AND AFTER ADMINISTRATION OF GEMCITABINE AND CISPLATIN
     Route: 042

REACTIONS (6)
  - Anaemia [Recovered/Resolved]
  - Leukopenia [Recovered/Resolved]
  - Nausea [Unknown]
  - Vomiting [Unknown]
  - Constipation [Unknown]
  - Nephropathy toxic [Recovered/Resolved]
